FAERS Safety Report 16975858 (Version 1)
Quarter: 2019Q4

REPORT INFORMATION
  Report Type: Spontaneous
  Country: GB (occurrence: GB)
  Receive Date: 20191030
  Receipt Date: 20191030
  Transmission Date: 20200122
  Serious: Yes (Hospitalization, Other)
  Sender: FDA-Public Use
  Company Number: GB-MYLANLABS-2019M1102919

PATIENT
  Age: 5 Year
  Sex: Male

DRUGS (2)
  1. THEOPHYLLINE [Suspect]
     Active Substance: THEOPHYLLINE ANHYDROUS
     Indication: ASTHMA
     Dosage: UNK UNK, Q8H
     Route: 048
  2. THEOPHYLLINE [Suspect]
     Active Substance: THEOPHYLLINE ANHYDROUS
     Dosage: UNK UNK, BID
     Route: 048

REACTIONS (7)
  - Toxicity to various agents [Recovering/Resolving]
  - Disorientation [Recovered/Resolved]
  - Thinking abnormal [Recovered/Resolved]
  - Eating disorder [Recovered/Resolved]
  - Logorrhoea [Recovered/Resolved]
  - Insomnia [Recovered/Resolved]
  - Acute psychosis [Recovered/Resolved]
